FAERS Safety Report 7024523-4 (Version None)
Quarter: 2010Q4

REPORT INFORMATION
  Report Type: 
  Country: None (occurrence: None)
  Receive Date: 20101001
  Receipt Date: 20100929
  Transmission Date: 20110411
  Serious: Yes (Other)
  Sender: FDA-Public Use
  Company Number: B0673173A

PATIENT
  Sex: Female

DRUGS (1)
  1. ZOVIRAX [Suspect]
     Route: 061
     Dates: start: 20100825, end: 20100825

REACTIONS (6)
  - APHASIA [None]
  - CHEILITIS [None]
  - ERYTHEMA [None]
  - FEELING HOT [None]
  - LIP SWELLING [None]
  - SCAB [None]
